FAERS Safety Report 9351708 (Version 1)
Quarter: 2013Q2

REPORT INFORMATION
  Report Type: Spontaneous
  Country: DE (occurrence: DE)
  Receive Date: 20130617
  Receipt Date: 20130617
  Transmission Date: 20140414
  Serious: Yes (Life-Threatening, Hospitalization, Other)
  Sender: FDA-Public Use
  Company Number: DE-ACTAVIS-2013-10270

PATIENT
  Age: 15 Year
  Sex: Male
  Weight: 70 kg

DRUGS (3)
  1. BACLOFEN (WATSON LABORATORIES) [Suspect]
     Indication: INTENTIONAL OVERDOSE
     Dosage: 2250 MG, SINGLE
     Route: 048
  2. MIDAZOLAM (UNKNOWN) [Suspect]
     Indication: SEDATION
     Dosage: 320 MCG/HR
     Route: 065
  3. FENTANYL (UNKNOWN) [Suspect]
     Indication: ANALGESIC THERAPY
     Dosage: 2 MCG/HR
     Route: 065

REACTIONS (16)
  - Coma [Recovered/Resolved]
  - Sinus bradycardia [Recovered/Resolved]
  - Respiratory depression [Recovered/Resolved]
  - Hyperreflexia [Recovered/Resolved]
  - Grand mal convulsion [Recovered/Resolved]
  - Status epilepticus [Recovering/Resolving]
  - Aggression [Unknown]
  - Nausea [Recovered/Resolved]
  - Vomiting [Recovered/Resolved]
  - Hypotonia [Recovered/Resolved]
  - Rhabdomyolysis [Recovering/Resolving]
  - Conjunctival hyperaemia [Recovering/Resolving]
  - Lagophthalmos [Recovering/Resolving]
  - Drug level increased [Recovering/Resolving]
  - Drug interaction [Unknown]
  - Intentional overdose [Recovered/Resolved]
